FAERS Safety Report 14671973 (Version 1)
Quarter: 2018Q1

REPORT INFORMATION
  Report Type: Spontaneous
  Country: US (occurrence: US)
  Receive Date: 20180323
  Receipt Date: 20180323
  Transmission Date: 20180509
  Serious: Yes (Other)
  Sender: FDA-Public Use
  Company Number: US-ACCORD-064675

PATIENT
  Sex: Male

DRUGS (2)
  1. TACROLIMUS. [Suspect]
     Active Substance: TACROLIMUS
     Indication: IMMUNOSUPPRESSANT DRUG THERAPY
     Dates: end: 2014
  2. SOFOSBUVIR/SIMEPREVIR [Concomitant]
     Indication: HEPATITIS C
     Dates: start: 2014

REACTIONS (1)
  - Toxicity to various agents [Unknown]
